FAERS Safety Report 7030050-0 (Version None)
Quarter: 2010Q4

REPORT INFORMATION
  Report Type: 
  Country: None (occurrence: None)
  Receive Date: 20101006
  Receipt Date: 20100927
  Transmission Date: 20110411
  Serious: Yes (Hospitalization)
  Sender: FDA-Public Use
  Company Number: ZA-GENZYME-FABR-1001416

PATIENT

DRUGS (3)
  1. FABRAZYME [Suspect]
     Indication: FABRY'S DISEASE
     Dosage: 70 MG, Q2W
     Route: 042
     Dates: start: 20080601
  2. FABRAZYME [Suspect]
     Dosage: 35 MG, 1X/W
     Route: 042
  3. ONDANSETRON [Concomitant]
     Indication: NAUSEA
     Dosage: 8 MG, UNK

REACTIONS (3)
  - HEARING IMPAIRED [None]
  - PARAESTHESIA [None]
  - RENAL IMPAIRMENT [None]
